FAERS Safety Report 16334713 (Version 4)
Quarter: 2020Q3

REPORT INFORMATION
  Report Type: Spontaneous
  Country: US (occurrence: US)
  Receive Date: 20190520
  Receipt Date: 20200925
  Transmission Date: 20201102
  Serious: Yes (Disabling, Other)
  Sender: FDA-Public Use
  Company Number: US-GILEAD-2019-0408522

PATIENT
  Sex: Male
  Weight: 75.7 kg

DRUGS (47)
  1. FLUCONAZOLE. [Concomitant]
     Active Substance: FLUCONAZOLE
  2. REYATAZ [Concomitant]
     Active Substance: ATAZANAVIR SULFATE
  3. LORAZEPAM. [Concomitant]
     Active Substance: LORAZEPAM
  4. NICODERM CQ [Concomitant]
     Active Substance: NICOTINE
  5. LAMOTRIGINE. [Concomitant]
     Active Substance: LAMOTRIGINE
  6. FAMOTIDINE. [Concomitant]
     Active Substance: FAMOTIDINE
  7. SEROSTIM [Concomitant]
     Active Substance: SOMATROPIN
  8. EPIVIR [Concomitant]
     Active Substance: LAMIVUDINE
  9. AMBIEN [Concomitant]
     Active Substance: ZOLPIDEM TARTRATE
  10. TRUVADA [Suspect]
     Active Substance: EMTRICITABINE\TENOFOVIR DISOPROXIL FUMARATE
     Indication: HIV INFECTION
     Dosage: UNK
     Route: 048
     Dates: start: 200803, end: 201611
  11. TRAZODONE [Concomitant]
     Active Substance: TRAZODONE HYDROCHLORIDE
  12. ATRIPLA [Suspect]
     Active Substance: EFAVIRENZ\EMTRICITABINE\TENOFOVIR DISOPROXIL FUMARATE
     Indication: HIV INFECTION
     Route: 065
  13. SULFAMETHOXAZOLE AND TRIMETHOPRIM [Concomitant]
     Active Substance: SULFAMETHOXAZOLE\TRIMETHOPRIM
  14. ENDOCET [Concomitant]
     Active Substance: ACETAMINOPHEN\OXYCODONE HYDROCHLORIDE
  15. QUETIAPINE. [Concomitant]
     Active Substance: QUETIAPINE
  16. PERCOCET [OXYCODONE HYDROCHLORIDE;OXYCODONE TEREPHTHALATE;PARACETAMOL] [Concomitant]
     Active Substance: ACETAMINOPHEN\OXYCODONE HYDROCHLORIDE\OXYCODONE TEREPHTHALATE
  17. ATORVASTATINE [ATORVASTATIN] [Concomitant]
     Active Substance: ATORVASTATIN
  18. PENICILLIN NOS [Concomitant]
     Active Substance: PENICILLIN
  19. STRIBILD [Suspect]
     Active Substance: COBICISTAT\ELVITEGRAVIR\EMTRICITABINE\TENOFOVIR DISOPROXIL FUMARATE
     Indication: HIV INFECTION
     Dosage: UNK
     Route: 065
     Dates: start: 201303, end: 201609
  20. GENVOYA [Concomitant]
     Active Substance: COBICISTAT\ELVITEGRAVIR\EMTRICITABINE\TENOFOVIR ALAFENAMIDE FUMARATE
  21. VIREAD [Suspect]
     Active Substance: TENOFOVIR DISOPROXIL FUMARATE
     Indication: HIV INFECTION
     Dosage: 1 DOSAGE FORM, QD
     Route: 048
     Dates: start: 200402, end: 201303
  22. DRONABINOL. [Concomitant]
     Active Substance: DRONABINOL
  23. ALENDRONATE [Concomitant]
     Active Substance: ALENDRONATE SODIUM
  24. BACTRIM [Concomitant]
     Active Substance: SULFAMETHOXAZOLE\TRIMETHOPRIM
  25. DIDANOSINE. [Concomitant]
     Active Substance: DIDANOSINE
  26. ANDROGEL [Concomitant]
     Active Substance: TESTOSTERONE
  27. NEFAZODONE HCL [Concomitant]
     Active Substance: NEFAZODONE HYDROCHLORIDE
  28. WELLBUTRIN [Concomitant]
     Active Substance: BUPROPION HYDROCHLORIDE
  29. COMBIVIR [Concomitant]
     Active Substance: LAMIVUDINE\ZIDOVUDINE
  30. SUSTIVA [Concomitant]
     Active Substance: EFAVIRENZ
  31. VIDEX [Concomitant]
     Active Substance: DIDANOSINE
  32. ABILIFY [Concomitant]
     Active Substance: ARIPIPRAZOLE
  33. ZOLPIDEM [Concomitant]
     Active Substance: ZOLPIDEM TARTRATE
  34. SEROQUEL [Concomitant]
     Active Substance: QUETIAPINE FUMARATE
  35. PROCHLORPERAZINE. [Concomitant]
     Active Substance: PROCHLORPERAZINE
  36. OXANDROLONE. [Concomitant]
     Active Substance: OXANDROLONE
  37. EDURANT [Concomitant]
     Active Substance: RILPIVIRINE HYDROCHLORIDE
  38. ZERIT [Concomitant]
     Active Substance: STAVUDINE
  39. GENOTROPIN [Concomitant]
     Active Substance: SOMATROPIN
  40. DIAZEPAM. [Concomitant]
     Active Substance: DIAZEPAM
  41. BUPROPION. [Concomitant]
     Active Substance: BUPROPION
  42. CEPHALEXIN [CEFALEXIN] [Concomitant]
     Active Substance: CEPHALEXIN
  43. MIRTAZAPINE. [Concomitant]
     Active Substance: MIRTAZAPINE
  44. ACYCLOVIR [ACICLOVIR] [Concomitant]
     Active Substance: ACYCLOVIR
  45. DEPAKOTE [Concomitant]
     Active Substance: DIVALPROEX SODIUM
  46. PREDNISONE. [Concomitant]
     Active Substance: PREDNISONE
  47. PROCHLORPERAZINE MALEATE. [Concomitant]
     Active Substance: PROCHLORPERAZINE MALEATE

REACTIONS (13)
  - Osteomalacia [Not Recovered/Not Resolved]
  - Osteoporosis [Not Recovered/Not Resolved]
  - Femoral neck fracture [Unknown]
  - Tooth loss [Recovered/Resolved]
  - Emotional distress [Unknown]
  - Pain [Unknown]
  - Depression [Not Recovered/Not Resolved]
  - Economic problem [Unknown]
  - Anxiety [Unknown]
  - Osteopenia [Not Recovered/Not Resolved]
  - Osteoporotic fracture [Unknown]
  - Bone density decreased [Not Recovered/Not Resolved]
  - Anhedonia [Unknown]

NARRATIVE: CASE EVENT DATE: 2008
